FAERS Safety Report 7864530-2 (Version None)
Quarter: 2011Q4

REPORT INFORMATION
  Report Type: 
  Country: None (occurrence: None)
  Receive Date: 20111028
  Receipt Date: 20111024
  Transmission Date: 20120403
  Serious: No
  Sender: FDA-Public Use
  Company Number: US-PFIZER INC-2011257993

PATIENT
  Sex: Female
  Weight: 53.1 kg

DRUGS (2)
  1. LISINOPRIL [Concomitant]
     Indication: HYPERTENSION
     Dosage: UNK
  2. FLECTOR [Suspect]
     Indication: BURSITIS
     Dosage: UNK
     Dates: start: 20110929

REACTIONS (1)
  - FREQUENT BOWEL MOVEMENTS [None]
